FAERS Safety Report 9003303 (Version 1)
Quarter: 2013Q1

REPORT INFORMATION
  Report Type: Spontaneous
  Country: US (occurrence: US)
  Receive Date: 20130108
  Receipt Date: 20130108
  Transmission Date: 20140127
  Serious: No
  Sender: FDA-Public Use
  Company Number: US-ASTRAZENECA-2013SE00371

PATIENT
  Age: 49 Year
  Sex: Female

DRUGS (2)
  1. PRILOSEC [Suspect]
     Indication: GASTROINTESTINAL ULCER
     Route: 048
  2. PRILOSEC OTC [Suspect]
     Indication: GASTROINTESTINAL ULCER
     Route: 048

REACTIONS (12)
  - Asthenia [Unknown]
  - Cough [Unknown]
  - Decreased appetite [Unknown]
  - Throat irritation [Unknown]
  - Throat tightness [Unknown]
  - Tinnitus [Unknown]
  - Abdominal discomfort [Unknown]
  - Arthralgia [Unknown]
  - Diarrhoea [Unknown]
  - Headache [Unknown]
  - Myalgia [Not Recovered/Not Resolved]
  - Pyrexia [Unknown]
